FAERS Safety Report 5743679-4 (Version None)
Quarter: 2008Q2

REPORT INFORMATION
  Report Type: 
  Country: None (occurrence: None)
  Receive Date: 20080520
  Receipt Date: 20080509
  Transmission Date: 20081010
  Serious: Yes (Other)
  Sender: FDA-Public Use
  Company Number: US-JNJFOC-20080502204

PATIENT
  Sex: Female
  Weight: 87.54 kg

DRUGS (9)
  1. REMICADE [Suspect]
     Route: 042
  2. REMICADE [Suspect]
     Route: 042
  3. REMICADE [Suspect]
     Indication: RHEUMATOID ARTHRITIS
     Route: 042
  4. TYLENOL [Concomitant]
     Route: 048
  5. TYLENOL [Concomitant]
     Indication: PREMEDICATION
     Route: 048
  6. CLARITIN [Concomitant]
     Route: 048
  7. CLARITIN [Concomitant]
     Indication: PREMEDICATION
     Route: 048
  8. ATENOLOL [Concomitant]
     Indication: HYPERTENSION
  9. GABAPENTIN [Concomitant]
     Indication: NEUROPATHY PERIPHERAL

REACTIONS (1)
  - THROMBOCYTHAEMIA [None]
